FAERS Safety Report 14240245 (Version 1)
Quarter: 2017Q4

REPORT INFORMATION
  Report Type: Report from Study
  Country: None (occurrence: US)
  Receive Date: 20171130
  Receipt Date: 20171130
  Transmission Date: 20180321
  Serious: Yes (Other)
  Sender: FDA-Public Use
  Company Number: US-ABBVIE-17P-163-2179792-00

PATIENT
  Age: 0 Day
  Sex: Female

DRUGS (2)
  1. NEXIUM [Suspect]
     Active Substance: ESOMEPRAZOLE MAGNESIUM
     Indication: MATERNAL EXPOSURE DURING PREGNANCY
     Route: 064
  2. SYNAGIS [Suspect]
     Active Substance: PALIVIZUMAB
     Indication: PRODUCT USED FOR UNKNOWN INDICATION
     Route: 030

REACTIONS (6)
  - Foetal exposure during pregnancy [Unknown]
  - Hyperbilirubinaemia [Recovered/Resolved]
  - Premature baby [Not Recovered/Not Resolved]
  - Infantile apnoea [Recovered/Resolved]
  - Neonatal respiratory distress syndrome [Recovered/Resolved]
  - Anaemia neonatal [Not Recovered/Not Resolved]

NARRATIVE: CASE EVENT DATE: 20170704
